FAERS Safety Report 12307657 (Version 1)
Quarter: 2016Q2

REPORT INFORMATION
  Report Type: Spontaneous
  Country: US (occurrence: US)
  Receive Date: 20160426
  Receipt Date: 20160426
  Transmission Date: 20160815
  Serious: No
  Sender: FDA-Public Use
  Company Number: US-ALKERMES INC.-ALK-2015-001223

PATIENT

DRUGS (1)
  1. VIVITROL [Suspect]
     Active Substance: NALTREXONE
     Indication: DRUG DEPENDENCE
     Dosage: 380 MG, QMO
     Route: 030

REACTIONS (6)
  - Injection site inflammation [Unknown]
  - Feeling abnormal [Unknown]
  - Injection site induration [Unknown]
  - Injection site necrosis [Unknown]
  - Injection site mass [Unknown]
  - Injection site reaction [Unknown]
